FAERS Safety Report 5853599-2 (Version None)
Quarter: 2008Q3

REPORT INFORMATION
  Report Type: 
  Country: None (occurrence: None)
  Receive Date: 20080822
  Receipt Date: 20080812
  Transmission Date: 20090109
  Serious: Yes (Other)
  Sender: FDA-Public Use
  Company Number: AU-JNJFOC-20080802856

PATIENT
  Sex: Female

DRUGS (1)
  1. REMICADE [Suspect]
     Indication: ANKYLOSING SPONDYLITIS
     Dosage: TOTAL # INFUSIONS: 3, 2 VIALS EACH INFUSION
     Route: 042

REACTIONS (2)
  - EMPYEMA [None]
  - TUBERCULOSIS [None]
